FAERS Safety Report 13974896 (Version 1)
Quarter: 2017Q3

REPORT INFORMATION
  Report Type: Spontaneous
  Country: US (occurrence: None)
  Receive Date: 20170915
  Receipt Date: 20170915
  Transmission Date: 20171128
  Serious: Yes (Life-Threatening, Hospitalization)
  Sender: FDA-Public Use
  Company Number: None

PATIENT
  Age: 77 Year
  Sex: Male
  Weight: 74.84 kg

DRUGS (13)
  1. FUROSEMIDE. [Concomitant]
     Active Substance: FUROSEMIDE
  2. IBUPROFEN. [Concomitant]
     Active Substance: IBUPROFEN
  3. BISMUTH SUBSALICYLATE. [Concomitant]
     Active Substance: BISMUTH SUBSALICYLATE
  4. INSULINS [Concomitant]
  5. INSULIN LISPRO [Concomitant]
     Active Substance: INSULIN LISPRO
  6. AMIODARONE [Concomitant]
     Active Substance: AMIODARONE
  7. APIXABAN [Concomitant]
     Active Substance: APIXABAN
  8. ASPIRIN. [Concomitant]
     Active Substance: ASPIRIN
  9. ELIQUIS [Suspect]
     Active Substance: APIXABAN
     Indication: ATRIAL FIBRILLATION
     Dates: start: 20170725, end: 20170801
  10. ASPIRIN. [Concomitant]
     Active Substance: ASPIRIN
  11. ASPIRIN. [Concomitant]
     Active Substance: ASPIRIN
  12. BENZOCAINE-MENTHOL [Concomitant]
  13. INSULIN GLARGINE [Concomitant]
     Active Substance: INSULIN GLARGINE

REACTIONS (8)
  - Fall [None]
  - Therapy cessation [None]
  - Weight decreased [None]
  - Heart rate decreased [None]
  - Oedema [None]
  - Blood count abnormal [None]
  - Pulmonary oedema [None]
  - Asthenia [None]

NARRATIVE: CASE EVENT DATE: 20170725
